FAERS Safety Report 8907236 (Version 1)
Quarter: 2012Q4

REPORT INFORMATION
  Report Type: 
  Country: US (occurrence: US)
  Receive Date: 20121114
  Receipt Date: 20121114
  Transmission Date: 20130627
  Serious: Yes (Hospitalization, Other)
  Sender: FDA-Public Use
  Company Number: US-BAYER-2012-116923

PATIENT
  Age: 59 Year
  Sex: Female

DRUGS (12)
  1. BETASERON [Suspect]
     Dosage: 0.25 mg, QOD
     Route: 058
  2. ACTOS [Concomitant]
     Dosage: 15 mg, UNK
  3. GLIPIZIDE [Concomitant]
     Dosage: 5 mg, UNK
  4. JANUVIA [Concomitant]
     Dosage: 25 mg, UNK
  5. LOSARTAN POTASSIUM [Concomitant]
     Dosage: 25 mg, UNK
  6. BACLOFEN [Concomitant]
     Dosage: 10 mg, UNK
  7. GABAPENTIN [Concomitant]
     Dosage: 300 mg, UNK
  8. LANSOPRAZOLE [Concomitant]
     Dosage: 30 mg, UNK
  9. PRENATAL [Concomitant]
     Dosage: 1 UNK, UNK
  10. ATORVASTATIN [Concomitant]
     Dosage: 20 mg, UNK
  11. COD LIVER OIL [Concomitant]
  12. VITAMIN D3 [Concomitant]

REACTIONS (5)
  - Blood pressure increased [Unknown]
  - Malaise [Unknown]
  - Unevaluable event [Unknown]
  - Pain [Unknown]
  - Injection site pain [Unknown]
